FAERS Safety Report 24526690 (Version 1)
Quarter: 2024Q4

REPORT INFORMATION
  Report Type: Report from Study
  Country: US (occurrence: US)
  Receive Date: 20241021
  Receipt Date: 20241021
  Transmission Date: 20250115
  Serious: No
  Sender: ROCHE
  Company Number: US-ROCHE-2940916

PATIENT
  Age: 75 Year
  Sex: Male

DRUGS (5)
  1. ZELBORAF [Suspect]
     Active Substance: VEMURAFENIB
     Indication: Post procedural haemorrhage
     Dosage: TAKE 1 TABLET BY MOUTH DAILY
     Route: 048
     Dates: start: 2016
  2. ZELBORAF [Suspect]
     Active Substance: VEMURAFENIB
     Indication: Histiocytosis
  3. ZELBORAF [Suspect]
     Active Substance: VEMURAFENIB
     Indication: Metabolic disorder
  4. ZELBORAF [Suspect]
     Active Substance: VEMURAFENIB
     Indication: Erdheim-Chester disease
  5. ZELBORAF [Suspect]
     Active Substance: VEMURAFENIB
     Indication: BRAF V600E mutation positive

REACTIONS (3)
  - Hypoacusis [Unknown]
  - Deafness unilateral [Not Recovered/Not Resolved]
  - Product prescribing error [Unknown]
